FAERS Safety Report 17229015 (Version 1)
Quarter: 2020Q1

REPORT INFORMATION
  Report Type: Spontaneous
  Country: US (occurrence: US)
  Receive Date: 20200103
  Receipt Date: 20200103
  Transmission Date: 20200409
  Serious: Yes (Other)
  Sender: FDA-Public Use
  Company Number: US-SCIEGEN PHARMACEUTICALS INC-2019SCISPO00394

PATIENT

DRUGS (1)
  1. LAMOTRIGINE TABLETS [Suspect]
     Active Substance: LAMOTRIGINE

REACTIONS (3)
  - Obsessive-compulsive disorder [Unknown]
  - Affect lability [Unknown]
  - Condition aggravated [Unknown]
